FAERS Safety Report 11610683 (Version 1)
Quarter: 2015Q4

REPORT INFORMATION
  Report Type: Spontaneous
  Country: US (occurrence: None)
  Receive Date: 20151007
  Receipt Date: 20151007
  Transmission Date: 20160304
  Serious: Yes (Disabling)
  Sender: FDA-Public Use
  Company Number: None

PATIENT
  Age: 23 Year
  Sex: Female
  Weight: 131.54 kg

DRUGS (21)
  1. LUPRON [Suspect]
     Active Substance: LEUPROLIDE ACETATE
     Indication: ENDOMETRIOSIS
     Dosage: 8-10 MONTHS
     Route: 030
  2. VENLAFAXINE [Concomitant]
     Active Substance: VENLAFAXINE HYDROCHLORIDE
  3. XANEX [Concomitant]
  4. BENADRYL [Concomitant]
     Active Substance: DIPHENHYDRAMINE HYDROCHLORIDE
  5. LUPRON [Suspect]
     Active Substance: LEUPROLIDE ACETATE
     Indication: ADENOMYOSIS
     Dosage: 8-10 MONTHS
     Route: 030
  6. HEART MONITOR [Concomitant]
  7. DOTERRA ESSENTIAL OILS [Concomitant]
  8. OMIPRAZAL [Concomitant]
  9. MULTI VITS [Concomitant]
  10. ADVIL [Concomitant]
     Active Substance: IBUPROFEN
  11. GABAPENTEN [Concomitant]
  12. B13 [Concomitant]
  13. D3 [Concomitant]
     Active Substance: 25-HYDROXYCHOLECALCIFEROL, 5-TRANS-
  14. ALEVE [Concomitant]
     Active Substance: NAPROXEN SODIUM
  15. ATERAX [Concomitant]
     Active Substance: HYDROXYZINE HYDROCHLORIDE
  16. VITAMIN B12 [Concomitant]
     Active Substance: CYANOCOBALAMIN
  17. PROGESTERONE. [Concomitant]
     Active Substance: PROGESTERONE
  18. TYLENOL PM [Concomitant]
     Active Substance: ACETAMINOPHEN\DIPHENHYDRAMINE
  19. LUPRON [Suspect]
     Active Substance: LEUPROLIDE ACETATE
     Indication: PRODUCT USED FOR UNKNOWN INDICATION
     Dosage: 8-10 MONTHS
     Route: 030
  20. ATIVAN [Concomitant]
     Active Substance: LORAZEPAM
  21. ADVIL PM [Concomitant]
     Active Substance: DIPHENHYDRAMINE CITRATE\IBUPROFEN

REACTIONS (14)
  - Night sweats [None]
  - Thinking abnormal [None]
  - Memory impairment [None]
  - Screaming [None]
  - Weight increased [None]
  - Tooth disorder [None]
  - Alopecia [None]
  - Headache [None]
  - Gait disturbance [None]
  - Movement disorder [None]
  - Hot flush [None]
  - Cognitive disorder [None]
  - Faecal incontinence [None]
  - Arthralgia [None]
